FAERS Safety Report 5959316-X (Version None)
Quarter: 2008Q4

REPORT INFORMATION
  Report Type: 
  Country: None (occurrence: None)
  Receive Date: 20081120
  Receipt Date: 20081117
  Transmission Date: 20090506
  Serious: Yes (Other)
  Sender: FDA-Public Use
  Company Number: FR-BRISTOL-MYERS SQUIBB COMPANY-14411474

PATIENT
  Age: 1 Decade
  Sex: Male

DRUGS (4)
  1. DIDANOSINE [Suspect]
     Route: 064
  2. ZIDOVUDINE [Suspect]
     Dosage: BABY RECEIVED 6 WEEKS ZIDOVUDINE THERAPY AFTER BIRTH.
     Route: 064
  3. LAMIVUDINE [Suspect]
     Route: 064
  4. NELFINAVIR [Suspect]
     Route: 064

REACTIONS (2)
  - OPTIC NERVE NEOPLASM [None]
  - PREGNANCY [None]
